FAERS Safety Report 12683423 (Version 6)
Quarter: 2017Q3

REPORT INFORMATION
  Report Type: Spontaneous
  Country: US (occurrence: US)
  Receive Date: 20160825
  Receipt Date: 20170921
  Transmission Date: 20171127
  Serious: Yes (Death)
  Sender: FDA-Public Use
  Company Number: US-PFIZER INC-2016398741

PATIENT
  Age: 60 Year
  Sex: Female
  Weight: 45.35 kg

DRUGS (2)
  1. IBRANCE [Suspect]
     Active Substance: PALBOCICLIB
     Indication: BREAST CANCER METASTATIC
     Dosage: 125 MG, CYCLIC (DAYS 1-21 Q28 DAYS)
     Route: 048
     Dates: start: 201605
  2. IBRANCE [Suspect]
     Active Substance: PALBOCICLIB
     Dosage: 125 MG, CYCLIC (DAYS 1-21 Q28 DAYS)
     Route: 048
     Dates: end: 201708

REACTIONS (15)
  - Dyspnoea [Unknown]
  - Abdominal pain [Unknown]
  - Abdominal distension [Unknown]
  - Hypotension [Unknown]
  - Death [Fatal]
  - Nausea [Unknown]
  - Malaise [Unknown]
  - Neoplasm progression [Unknown]
  - Diarrhoea [Unknown]
  - Vomiting [Unknown]
  - Musculoskeletal stiffness [Unknown]
  - Blood iron decreased [Recovered/Resolved]
  - Drug dose omission [Unknown]
  - Peripheral swelling [Unknown]
  - Dizziness [Unknown]

NARRATIVE: CASE EVENT DATE: 20170814
